FAERS Safety Report 5297395-6 (Version None)
Quarter: 2007Q2

REPORT INFORMATION
  Report Type: 
  Country: None (occurrence: None)
  Receive Date: 20070410
  Receipt Date: 20070410
  Transmission Date: 20071010
  Serious: No
  Sender: FDA-Public Use
  Company Number: None

PATIENT

DRUGS (2)
  1. TUBERSOL (TUBERCULIN PURIFIED PROTEIN) [Suspect]
     Dosage: INJECTABLE  VIAL 5 ML
  2. IMOGAN RABIES-HT (RABIES IMMUNE GLOBULIN) [Suspect]
     Dosage: INJECTABLE  VIAL 10 ML

REACTIONS (2)
  - INTERCEPTED DRUG DISPENSING ERROR [None]
  - MEDICATION ERROR [None]
